FAERS Safety Report 10948724 (Version 2)
Quarter: 2015Q2

REPORT INFORMATION
  Report Type: Spontaneous
  Country: IT (occurrence: IT)
  Receive Date: 20150324
  Receipt Date: 20150612
  Transmission Date: 20150821
  Serious: Yes (Other)
  Sender: FDA-Public Use
  Company Number: IT-CELGENE-ITA-2014115793

PATIENT

DRUGS (3)
  1. DEXAMETHASONE. [Concomitant]
     Active Substance: DEXAMETHASONE
     Indication: PLASMA CELL MYELOMA
     Route: 065
  2. THALIDOMIDE [Suspect]
     Active Substance: THALIDOMIDE
     Indication: PLASMA CELL MYELOMA
     Route: 048
  3. BORTEZOMIB [Concomitant]
     Active Substance: BORTEZOMIB
     Indication: PLASMA CELL MYELOMA
     Route: 065

REACTIONS (14)
  - Hodgkin^s disease [Unknown]
  - Prostate cancer [Unknown]
  - Cholangiocarcinoma [Unknown]
  - Astrocytoma [Unknown]
  - Mesothelioma [Unknown]
  - Head and neck cancer [Unknown]
  - Colon cancer [Unknown]
  - Lung neoplasm malignant [Unknown]
  - Malignant melanoma [Unknown]
  - Non-Hodgkin^s lymphoma [Unknown]
  - Breast cancer [Unknown]
  - Neoplasm malignant [Unknown]
  - Pancreatic carcinoma [Unknown]
  - Acute myeloid leukaemia [Unknown]
